FAERS Safety Report 10840078 (Version 2)
Quarter: 2015Q1

REPORT INFORMATION
  Report Type: Spontaneous
  Country: IT (occurrence: None)
  Receive Date: 20150218
  Receipt Date: 20150303
  Transmission Date: 20150721
  Serious: Yes (Other)
  Sender: FDA-Public Use
  Company Number: FK201500743

PATIENT
  Age: 70 Year
  Sex: Female
  Weight: 110 kg

DRUGS (2)
  1. PROPOFOL (MANUFACTURER UNKNOWN) (PROPOFOL) (PROPOFOL) [Suspect]
     Active Substance: PROPOFOL
     Indication: SEDATIVE THERAPY
     Dosage: 50 MG, 1 IN 1 TOTAL
     Dates: start: 20150123, end: 20150123
  2. MIDAZOLAM [Concomitant]
     Active Substance: MIDAZOLAM\MIDAZOLAM HYDROCHLORIDE

REACTIONS (1)
  - Post-injection delirium sedation syndrome [None]

NARRATIVE: CASE EVENT DATE: 20150123
